FAERS Safety Report 7775275-1 (Version None)
Quarter: 2011Q3

REPORT INFORMATION
  Report Type: 
  Country: None (occurrence: None)
  Receive Date: 20110921
  Receipt Date: 20110831
  Transmission Date: 20111222
  Serious: Yes (Other)
  Sender: FDA-Public Use
  Company Number: 2011SP042340

PATIENT
  Age: 25 Year
  Sex: Female

DRUGS (2)
  1. SULFASALAZINE [Suspect]
     Indication: PRODUCT USED FOR UNKNOWN INDICATION
  2. CERAZETTE (DESOGESTREL /00754001/) [Suspect]
     Indication: PRODUCT USED FOR UNKNOWN INDICATION

REACTIONS (2)
  - ARTHRITIS REACTIVE [None]
  - ANAPHYLACTIC REACTION [None]
